FAERS Safety Report 21239223 (Version 1)
Quarter: 2022Q3

REPORT INFORMATION
  Report Type: Spontaneous
  Country: US (occurrence: None)
  Receive Date: 20220819
  Receipt Date: 20220819
  Transmission Date: 20221026
  Serious: Yes (Other)
  Sender: FDA-Public Use
  Company Number: None

PATIENT
  Age: 5 Year
  Sex: Male
  Weight: 16.3 kg

DRUGS (7)
  1. ENTRESTO [Suspect]
     Active Substance: SACUBITRIL\VALSARTAN
     Indication: Cardiomyopathy
     Dosage: FREQUENCY : TWICE A DAY;?
     Dates: start: 20220512, end: 20220725
  2. CARVEDILOL [Concomitant]
     Active Substance: CARVEDILOL
     Dates: start: 20191030
  3. SPIRONOLACTONE [Concomitant]
     Active Substance: SPIRONOLACTONE
     Dates: start: 20191030
  4. ENALAPRIL [Concomitant]
     Active Substance: ENALAPRIL
     Dates: start: 20220725
  5. ENALAPRIL [Concomitant]
     Active Substance: ENALAPRIL
     Dates: start: 20190925, end: 20220512
  6. FUROSEMIDE [Concomitant]
     Active Substance: FUROSEMIDE
     Dates: start: 20200129, end: 20220803
  7. HYDROCHLOROTHIAZIDE [Concomitant]
     Active Substance: HYDROCHLOROTHIAZIDE
     Dates: start: 20200803

REACTIONS (2)
  - Urticaria chronic [None]
  - Angioedema [None]

NARRATIVE: CASE EVENT DATE: 20220818
